FAERS Safety Report 19044299 (Version 5)
Quarter: 2024Q1

REPORT INFORMATION
  Report Type: Spontaneous
  Country: US (occurrence: US)
  Receive Date: 20210323
  Receipt Date: 20240209
  Transmission Date: 20240410
  Serious: Yes (Other)
  Sender: FDA-Public Use
  Company Number: US-SA-SAC20210318001123

PATIENT
  Age: 46 Year
  Sex: Male

DRUGS (2)
  1. ELOCTATE [Suspect]
     Active Substance: EFMOROCTOCOG ALFA
     Dosage: 4000 U (-5% / +10%), PRN
     Route: 042
  2. ELOCTATE [Suspect]
     Active Substance: EFMOROCTOCOG ALFA
     Dosage: 4000 U (-5% / +10%), PRN
     Route: 042

REACTIONS (5)
  - Haemorrhage [Recovered/Resolved]
  - Limb injury [Unknown]
  - Accident [Unknown]
  - Haemorrhage [Unknown]
  - Knee operation [Recovered/Resolved]

NARRATIVE: CASE EVENT DATE: 20210315
